FAERS Safety Report 17702694 (Version 1)
Quarter: 2020Q2

REPORT INFORMATION
  Report Type: Spontaneous
  Country: US (occurrence: US)
  Receive Date: 20200423
  Receipt Date: 20200423
  Transmission Date: 20200714
  Serious: No
  Sender: FDA-Public Use
  Company Number: US-009507513-2004USA006371

PATIENT
  Age: 80 Year
  Sex: Male
  Weight: 63.49 kg

DRUGS (8)
  1. SINEMET [Suspect]
     Active Substance: CARBIDOPA\LEVODOPA
     Dosage: UNK
     Route: 048
  2. ATORVASTATIN [Concomitant]
     Active Substance: ATORVASTATIN
  3. AMANTADINE. [Suspect]
     Active Substance: AMANTADINE HYDROCHLORIDE
     Indication: DYSKINESIA
     Dosage: 68.5 MILLIGRAM, 1X/DAY AT BEDTIME
     Route: 048
     Dates: start: 202002, end: 20200309
  4. PROPRANOLOL [Concomitant]
     Active Substance: PROPRANOLOL HYDROCHLORIDE
  5. CAPOTEN [Concomitant]
     Active Substance: CAPTOPRIL
  6. DONEPEZIL. [Concomitant]
     Active Substance: DONEPEZIL
  7. MELATONIN [Concomitant]
     Active Substance: MELATONIN
  8. SELEGILINE [Concomitant]
     Active Substance: SELEGILINE

REACTIONS (5)
  - Pollakiuria [Unknown]
  - Drug ineffective [Unknown]
  - Chromaturia [Not Recovered/Not Resolved]
  - Expired product administered [Unknown]
  - Dyskinesia [Unknown]

NARRATIVE: CASE EVENT DATE: 202002
